FAERS Safety Report 14317593 (Version 1)
Quarter: 2017Q4

REPORT INFORMATION
  Report Type: Spontaneous
  Country: KR (occurrence: KR)
  Receive Date: 20171222
  Receipt Date: 20171222
  Transmission Date: 20180321
  Serious: Yes (Death, Hospitalization, Other)
  Sender: FDA-Public Use
  Company Number: KR-009507513-1712KOR008684

PATIENT
  Age: 52 Year
  Sex: Male
  Weight: 69 kg

DRUGS (11)
  1. DAUNORUBICIN [Concomitant]
     Active Substance: DAUNORUBICIN
     Indication: ACUTE MYELOID LEUKAEMIA
     Dosage: 78 MG, QD
     Route: 042
     Dates: start: 20170909, end: 20170911
  2. ACYCLOVIR. [Concomitant]
     Active Substance: ACYCLOVIR
     Dosage: 400 MG, QD
     Route: 048
     Dates: start: 20170922, end: 20170926
  3. NOXAFIL [Suspect]
     Active Substance: POSACONAZOLE
     Dosage: 300 MG, BID
     Route: 048
     Dates: start: 20170911, end: 20170911
  4. CEFAZOLIN SODIUM. [Concomitant]
     Active Substance: CEFAZOLIN SODIUM
     Indication: PROPHYLAXIS
     Dosage: 2 G, TID
     Route: 042
     Dates: start: 20170915, end: 20170928
  5. CEFTAZIDIME. [Concomitant]
     Active Substance: CEFTAZIDIME
     Indication: PROPHYLAXIS
     Dosage: 2 G, TID
     Route: 042
     Dates: start: 20170915, end: 20170928
  6. NOXAFIL [Suspect]
     Active Substance: POSACONAZOLE
     Indication: ANTIFUNGAL PROPHYLAXIS
     Dosage: 300 MG, QD
     Route: 048
     Dates: start: 20170912, end: 20171008
  7. ACYCLOVIR. [Concomitant]
     Active Substance: ACYCLOVIR
     Indication: PROPHYLAXIS
     Dosage: 420 MG, BID
     Route: 042
     Dates: start: 20170927, end: 20171007
  8. GANCICLOVIR SODIUM. [Concomitant]
     Active Substance: GANCICLOVIR SODIUM
     Indication: PROPHYLAXIS
     Dosage: 5 MG/KG, QD
     Route: 042
     Dates: start: 20170909, end: 20170921
  9. CYTARABINE. [Concomitant]
     Active Substance: CYTARABINE
  10. METRONIDAZOLE. [Concomitant]
     Active Substance: METRONIDAZOLE
     Indication: PROPHYLAXIS
     Dosage: 500 MG, TID
     Route: 042
     Dates: start: 20170915, end: 20171012
  11. CILASTATIN SODIUM (+) IMIPENEM [Concomitant]
     Active Substance: CILASTATIN SODIUM\IMIPENEM
     Indication: PROPHYLAXIS
     Dosage: 500 MG, UNK
     Route: 042
     Dates: start: 20171010, end: 20171012

REACTIONS (3)
  - Acute myeloid leukaemia [Fatal]
  - Enterococcal infection [Not Recovered/Not Resolved]
  - Azotaemia [Unknown]

NARRATIVE: CASE EVENT DATE: 20171001
